FAERS Safety Report 5758870-0 (Version None)
Quarter: 2008Q2

REPORT INFORMATION
  Report Type: 
  Country: None (occurrence: None)
  Receive Date: 20080603
  Receipt Date: 20080603
  Transmission Date: 20081010
  Serious: Yes (Other)
  Sender: FDA-Public Use
  Company Number: None

PATIENT
  Age: 57 Year
  Sex: Female
  Weight: 47.6277 kg

DRUGS (1)
  1. CLINDAMYCIN HCL [Suspect]
     Indication: GINGIVITIS
     Dosage: 150 MG X1 PO
     Route: 048
     Dates: start: 20080601, end: 20080601

REACTIONS (1)
  - RED MAN SYNDROME [None]
